FAERS Safety Report 8254585-8 (Version None)
Quarter: 2012Q2

REPORT INFORMATION
  Report Type: 
  Country: None (occurrence: None)
  Receive Date: 20120403
  Receipt Date: 20120319
  Transmission Date: 20120825
  Serious: Yes (Hospitalization)
  Sender: FDA-Public Use
  Company Number: US-BAYER-200942557NA

PATIENT
  Age: 27 Year
  Sex: Female
  Weight: 73.182 kg

DRUGS (7)
  1. YAZ [Suspect]
     Dates: start: 20071001, end: 20080103
  2. ASCORBIC ACID [Concomitant]
     Dosage: DAILY
  3. PROVIGIL [Concomitant]
     Dates: start: 19990101
  4. RITALIN [Concomitant]
     Dates: start: 20050801, end: 20090801
  5. RELPAX [Concomitant]
     Dates: start: 20050801
  6. NSAID'S [Concomitant]
  7. TOPAMAX [Concomitant]
     Dates: start: 20050801

REACTIONS (7)
  - PAIN IN EXTREMITY [None]
  - DEEP VEIN THROMBOSIS [None]
  - DYSPNOEA EXERTIONAL [None]
  - COUGH [None]
  - PULMONARY EMBOLISM [None]
  - DYSPNOEA [None]
  - CHEST PAIN [None]
